FAERS Safety Report 5710895-7 (Version None)
Quarter: 2008Q2

REPORT INFORMATION
  Report Type: 
  Country: None (occurrence: None)
  Receive Date: 20080421
  Receipt Date: 20080411
  Transmission Date: 20081010
  Serious: Yes (Hospitalization)
  Sender: FDA-Public Use
  Company Number: PHNU2008DE01529

PATIENT
  Sex: Female

DRUGS (16)
  1. ESIDRIX [Suspect]
     Dosage: 25 MG/DAY
     Route: 065
  2. RYTHMOL [Concomitant]
     Dosage: 300 MG/DAY
     Route: 065
  3. AMLODIPINE [Concomitant]
     Dosage: 5 MG/DAY
     Route: 065
  4. ATORVASTATIN [Concomitant]
     Dosage: 10 MG/DAY
     Route: 065
  5. RESTEX [Concomitant]
     Dosage: 1 DF/DAY
     Route: 048
  6. POTASSIUM CHLORIDE [Concomitant]
     Dosage: 2 DF/DAY
     Route: 048
  7. ACIMETHIN [Concomitant]
     Dosage: 1500 MG/DAY
     Route: 065
  8. CEBION [Concomitant]
     Dosage: 3 DF/DAY
     Route: 048
  9. PANTOZOL [Concomitant]
     Dosage: 40 MG/DAY
     Route: 065
  10. MOVICOL [Concomitant]
     Dosage: 1 DF/DAY
     Route: 048
  11. MARCUMAR [Concomitant]
     Route: 065
  12. LITHIUM CARBONATE [Suspect]
     Dosage: 225 MG/DAY
     Route: 065
  13. ENALAPRIL MALEATE [Suspect]
     Dosage: 10 MG/DAY
     Route: 065
  14. CITALOPRAM HYDROBROMIDE [Suspect]
     Dosage: 30 MG/DAY
     Route: 065
  15. VENLAFAXINE HCL [Suspect]
     Dosage: 225 MG/DAY
     Route: 065
     Dates: end: 20041214
  16. VENLAFAXINE HCL [Suspect]
     Dosage: 75 MG/DAY
     Route: 065
     Dates: start: 20050111, end: 20050116

REACTIONS (4)
  - ATAXIA [None]
  - CONSTIPATION [None]
  - DRUG INTERACTION [None]
  - GAIT DISTURBANCE [None]
